FAERS Safety Report 11000726 (Version 1)
Quarter: 2015Q2

REPORT INFORMATION
  Report Type: Spontaneous
  Country: US (occurrence: US)
  Receive Date: 20150408
  Receipt Date: 20150408
  Transmission Date: 20150821
  Serious: No
  Sender: FDA-Public Use
  Company Number: US-SA-2014SA123709

PATIENT
  Age: 66 Year
  Sex: Female

DRUGS (3)
  1. ALLEGRA [Suspect]
     Active Substance: FEXOFENADINE HYDROCHLORIDE
     Indication: MULTIPLE ALLERGIES
     Route: 048
  2. OXYGEN. [Concomitant]
     Active Substance: OXYGEN
  3. DEXTROMETHORPHAN/GUAIFENESIN [Concomitant]

REACTIONS (1)
  - Therapeutic response delayed [Unknown]
